FAERS Safety Report 7393686-3 (Version None)
Quarter: 2011Q2

REPORT INFORMATION
  Report Type: 
  Country: None (occurrence: None)
  Receive Date: 20110405
  Receipt Date: 20101019
  Transmission Date: 20111010
  Serious: Yes (Hospitalization, Other)
  Sender: FDA-Public Use
  Company Number: US-BAYER-201017248NA

PATIENT
  Sex: Female
  Weight: 158.73 kg

DRUGS (4)
  1. CIPRO [Concomitant]
     Indication: URINARY TRACT INFECTION
  2. YASMIN [Suspect]
     Dosage: UNK
     Dates: start: 20070201, end: 20070501
  3. OCELLA [Suspect]
     Dosage: UNK
     Dates: start: 20070201, end: 20070501
  4. LACTULOSE [Concomitant]

REACTIONS (4)
  - VOMITING [None]
  - CHOLELITHIASIS [None]
  - ABDOMINAL PAIN [None]
  - CHOLECYSTITIS CHRONIC [None]
